FAERS Safety Report 26084415 (Version 2)
Quarter: 2025Q4

REPORT INFORMATION
  Report Type: Spontaneous
  Country: US (occurrence: US)
  Receive Date: 20251124
  Receipt Date: 20251203
  Transmission Date: 20260119
  Serious: Yes (Death, Life-Threatening, Hospitalization, Other)
  Sender: PFIZER
  Company Number: US-PFIZER INC-PV202500136261

PATIENT
  Age: 13 Year
  Sex: Female

DRUGS (1)
  1. BENZONATATE [Suspect]
     Active Substance: BENZONATATE
     Indication: Completed suicide
     Dosage: UNK

REACTIONS (3)
  - Pulse absent [Fatal]
  - Intentional overdose [Fatal]
  - Off label use [Unknown]
